FAERS Safety Report 19223628 (Version 1)
Quarter: 2021Q2

REPORT INFORMATION
  Report Type: Report from Study
  Country: IT (occurrence: IT)
  Receive Date: 20210506
  Receipt Date: 20210506
  Transmission Date: 20210717
  Serious: Yes (Other)
  Sender: FDA-Public Use
  Company Number: IT-TEVA-2021-IT-1907676

PATIENT
  Age: 58 Year
  Sex: Male

DRUGS (6)
  1. ALLOPURINOL. [Concomitant]
     Active Substance: ALLOPURINOL
     Indication: HYPERURICAEMIA
  2. EPIRUBICINA TEVA [Suspect]
     Active Substance: EPIRUBICIN
     Indication: BREAST CANCER MALE
     Route: 042
     Dates: start: 20210120, end: 20210324
  3. CARDURA [Concomitant]
     Active Substance: DOXAZOSIN MESYLATE
     Indication: HYPERTENSION
     Dates: start: 20180901
  4. CARDICOR [Concomitant]
     Active Substance: BISOPROLOL
     Indication: HYPERTENSION
     Dates: start: 20180901
  5. KARVEZIDE [Concomitant]
     Active Substance: HYDROCHLOROTHIAZIDE\IRBESARTAN
     Indication: HYPERTENSION
     Dates: start: 20180901
  6. ENDOXAN BAXTER [Suspect]
     Active Substance: CYCLOPHOSPHAMIDE
     Indication: BREAST CANCER MALE
     Route: 030
     Dates: start: 20210120, end: 20210324

REACTIONS (12)
  - Anaemia [Recovering/Resolving]
  - Fatigue [Recovering/Resolving]
  - Lacrimation increased [Recovering/Resolving]
  - Hypotension [Recovering/Resolving]
  - Dysgeusia [Recovering/Resolving]
  - Photophobia [Recovering/Resolving]
  - Dry mouth [Recovering/Resolving]
  - Ageusia [Recovering/Resolving]
  - Alopecia totalis [Recovering/Resolving]
  - Leukopenia [Recovering/Resolving]
  - Nocturia [Recovering/Resolving]
  - Gastrointestinal sounds abnormal [Recovering/Resolving]

NARRATIVE: CASE EVENT DATE: 20210120
